FAERS Safety Report 7323763-4 (Version None)
Quarter: 2011Q1

REPORT INFORMATION
  Report Type: 
  Country: None (occurrence: None)
  Receive Date: 20110216
  Receipt Date: 20110201
  Transmission Date: 20110831
  Serious: Yes (Other)
  Sender: FDA-Public Use
  Company Number: 2011P1003910

PATIENT
  Sex: Male
  Weight: 120.2032 kg

DRUGS (2)
  1. TOLNAFTATE POWDER (NO PREF. NAME) [Suspect]
     Indication: TINEA CRURIS
     Dosage: QD;TOP
     Route: 061
     Dates: start: 20101218
  2. TOLNAFTATE CREAM 1% (NO PREF. NAME) [Suspect]
     Indication: TINEA CRURIS
     Dosage: QD;TOP
     Route: 061
     Dates: start: 20101218

REACTIONS (3)
  - RASH [None]
  - PAIN [None]
  - PRODUCT SUBSTITUTION ISSUE [None]
